FAERS Safety Report 15188711 (Version 1)
Quarter: 2018Q3

REPORT INFORMATION
  Report Type: Spontaneous
  Country: US (occurrence: US)
  Receive Date: 20180724
  Receipt Date: 20180724
  Transmission Date: 20181010
  Serious: No
  Sender: FDA-Public Use
  Company Number: US-PFIZER INC-2018297337

PATIENT
  Age: 24 Year
  Sex: Female

DRUGS (1)
  1. GENOTROPIN MQ [Suspect]
     Active Substance: SOMATROPIN
     Dosage: 1 MG, 3 TIMES A WEEK
     Dates: start: 201208

REACTIONS (6)
  - Drug dose omission [Unknown]
  - Device issue [Unknown]
  - White blood cell count increased [Unknown]
  - Granulocyte count increased [Unknown]
  - Product use issue [Unknown]
  - Bone density decreased [Unknown]
